FAERS Safety Report 4595748-2 (Version None)
Quarter: 2005Q1

REPORT INFORMATION
  Report Type: 
  Country: None (occurrence: None)
  Receive Date: 20050224
  Receipt Date: 20050214
  Transmission Date: 20050727
  Serious: Yes (Hospitalization)
  Sender: FDA-Public Use
  Company Number: RS004992-MAL

PATIENT
  Sex: Female

DRUGS (1)
  1. PARIET (RABEPRAZOLE) (RABEPRAZOLE SODIUM) [Suspect]
     Indication: GASTROOESOPHAGEAL REFLUX DISEASE
     Dosage: 10 MG 1 IN 1 D ORAL
     Route: 048

REACTIONS (1)
  - PARALYSIS [None]
